FAERS Safety Report 7068848 (Version 2)
Quarter: 2014Q1

REPORT INFORMATION
  Report Type: Spontaneous
  Country: US (occurrence: None)
  Receive Date: 20090724
  Receipt Date: 20140107
  Transmission Date: 20141002
  Serious: Yes (Hospitalization)
  Sender: FDA-Public Use
  Company Number: 2009S1005531

PATIENT
  Age: 44 Year
  Sex: Female
  Weight: 77.75 kg

DRUGS (19)
  1. FLEET PHOSPHO-SODA ORAL SALINE LAXATIVE, GINGER-LEMON FLAVOR (ORAL SOLUTION) [Suspect]
     Indication: PRODUCT USED FOR UNKNOWN INDICATION
     Route: 048
     Dates: start: 200710, end: 200710
  2. JANUVIA(SITAGLIPTIN PHOSPHATE) [Concomitant]
  3. LAMICTAL (LAMOTRIGINE) [Concomitant]
  4. ALPRAZOLAM (ALPRAZOLAM) [Concomitant]
  5. GABAPENTIN (GABAPENTIN) [Concomitant]
  6. BACLOFEN (BACLOFEN) [Concomitant]
  7. METOPROLOL (METOPROLOL) [Concomitant]
  8. SEROQUEL (QUETIAPINE FUMARATE) [Concomitant]
  9. NORTRIPTYLINE (NORTRIPTYLINE) [Concomitant]
  10. PREVACID (LANSOPRAZOLE) [Concomitant]
  11. LIPITOR (ATORVASTATIN CALCIUM) [Concomitant]
  12. SYNTHROID (LEVOTHYROXINE SODIUM) [Concomitant]
  13. PLAVIX (CLOPIDOGREL BISULFATE) [Concomitant]
  14. PROVENTIL (SALBUTAMOL) [Concomitant]
  15. ATROVENT (IPRATROPIUM BROMIDE) [Concomitant]
  16. MISOPROSTOL (MISOPROSTOL) [Concomitant]
  17. NITROQUICK (GLYCERYL TRINITRATE) [Concomitant]
  18. ASA (ACETYLSALICYLIC ACID) [Concomitant]
  19. METFORMIN (METFORMIN) [Concomitant]

REACTIONS (1)
  - Renal failure [None]
